FAERS Safety Report 25340100 (Version 3)
Quarter: 2025Q3

REPORT INFORMATION
  Report Type: Spontaneous
  Country: US (occurrence: US)
  Receive Date: 20250521
  Receipt Date: 20250918
  Transmission Date: 20251021
  Serious: Yes (Disabling, Other)
  Sender: AMGEN
  Company Number: US-AMGEN-USASL2025096051

PATIENT
  Age: 60 Year
  Sex: Female
  Weight: 70 kg

DRUGS (36)
  1. TEPEZZA [Suspect]
     Active Substance: TEPROTUMUMAB-TRBW
     Indication: Graves^ disease
     Route: 040
     Dates: start: 20200825, end: 20200825
  2. TEPEZZA [Suspect]
     Active Substance: TEPROTUMUMAB-TRBW
     Indication: Endocrine ophthalmopathy
     Dosage: 1500 MILLIGRAM, Q3WK (20.0MG/KG EVERY 3 WEEKS FOR 1 YEAR)
     Route: 040
     Dates: start: 20201006, end: 20201006
  3. TEPEZZA [Suspect]
     Active Substance: TEPROTUMUMAB-TRBW
     Dosage: 1500 MILLIGRAM, Q3WK (20 MILLIGRAM/KILOGRAM)
     Route: 040
     Dates: start: 20201027, end: 20201027
  4. TEPEZZA [Suspect]
     Active Substance: TEPROTUMUMAB-TRBW
     Route: 040
     Dates: start: 20201027, end: 20201027
  5. TEPEZZA [Suspect]
     Active Substance: TEPROTUMUMAB-TRBW
     Dosage: 1500 MILLIGRAM, Q3WK (20.0MG/KG EVERY 3 WEEKS FOR 1 YEAR)
     Route: 040
     Dates: start: 20200915, end: 20200915
  6. TEPEZZA [Suspect]
     Active Substance: TEPROTUMUMAB-TRBW
     Route: 040
     Dates: end: 20210515
  7. ECOTRIN [Concomitant]
     Active Substance: ASPIRIN
     Dosage: 81 MILLIGRAM, QD
     Route: 048
  8. TAPAZOLE [Concomitant]
     Active Substance: METHIMAZOLE
     Route: 048
  9. TAPAZOLE [Concomitant]
     Active Substance: METHIMAZOLE
     Dosage: 10 MILLIGRAM, QD
     Route: 048
  10. VITAMINS [Concomitant]
     Active Substance: VITAMINS
     Route: 065
  11. DELTASONE [Concomitant]
     Active Substance: PREDNISONE
     Indication: Endocrine ophthalmopathy
     Dosage: 20 MILLIGRAM, TID
     Route: 048
  12. DELTASONE [Concomitant]
     Active Substance: PREDNISONE
     Dosage: 20 MILLIGRAM, BID
     Route: 048
  13. DELTASONE [Concomitant]
     Active Substance: PREDNISONE
     Dosage: 10 MILLIGRAM, QD. (TAKE 80 MILLIGRAM DAILY)
     Route: 065
  14. SELENIUM [Concomitant]
     Active Substance: SELENIUM
     Route: 065
  15. SYSTANE (HYPROMELLOSE 2910 (4000 MPA.S)) [Concomitant]
     Active Substance: HYPROMELLOSE 2910 (4000 MPA.S)
     Route: 047
  16. HERBALS\TURMERIC [Concomitant]
     Active Substance: HERBALS\TURMERIC
     Route: 065
  17. VITAMIN D3 [Concomitant]
     Active Substance: CHOLECALCIFEROL
     Route: 048
  18. PNEUMOCOCCAL VACCINE NOS [Concomitant]
     Active Substance: PNEUMOCOCCAL VACCINE
     Route: 065
  19. BSS [Concomitant]
     Active Substance: CALCIUM CHLORIDE\MAGNESIUM CHLORIDE\POTASSIUM CHLORIDE\SODIUM ACETATE\SODIUM CHLORIDE\SODIUM CITRATE
  20. TOBRADEX [Concomitant]
     Active Substance: DEXAMETHASONE\TOBRAMYCIN
     Route: 065
  21. XYLOCAINE WITH EPINEPHRINE [Concomitant]
     Active Substance: EPINEPHRINE BITARTRATE\LIDOCAINE HYDROCHLORIDE
     Route: 065
  22. SUBLIMAZE [Concomitant]
     Active Substance: FENTANYL CITRATE
     Route: 065
  23. DIPRIVAN [Concomitant]
     Active Substance: PROPOFOL
     Route: 065
  24. ZOFRAN [Concomitant]
     Active Substance: ONDANSETRON HYDROCHLORIDE
     Route: 065
  25. TETRACAINE [Concomitant]
     Active Substance: TETRACAINE
     Route: 065
  26. Neo synephrine [Concomitant]
     Route: 065
  27. BACITRACIN [Concomitant]
     Active Substance: BACITRACIN
     Route: 065
  28. FISH OIL [Concomitant]
     Active Substance: FISH OIL
     Route: 065
  29. BIOTIN [Concomitant]
     Active Substance: BIOTIN
     Route: 065
  30. Moxi [Concomitant]
     Dosage: UNK UNK, TID
     Route: 047
  31. PREDNISONE [Concomitant]
     Active Substance: PREDNISONE
     Dosage: UNK UNK, TID
     Route: 047
  32. Artificial tears [Concomitant]
     Dosage: UNK UNK, QID
     Route: 047
  33. RESTASIS [Concomitant]
     Active Substance: CYCLOSPORINE
     Dosage: UNK UNK, BID ( 0.05 % EYE DROPS IN A DROPPERETTE TAKE 1 DROPPERETTE)
     Route: 047
     Dates: start: 20221017
  34. CEQUA [Concomitant]
     Active Substance: CYCLOSPORINE
     Dosage: UNK UNK, Q12H ( 0.09 % EYE DROPS IN A DROPPERETTE TAKE 1 DROPPERETTE)
     Route: 047
     Dates: start: 20221012, end: 20221017
  35. SODIUM CHLORIDE [Concomitant]
     Active Substance: SODIUM CHLORIDE
     Route: 065
  36. SODIUM CHLORIDE [Concomitant]
     Active Substance: SODIUM CHLORIDE
     Route: 065

REACTIONS (19)
  - Deafness permanent [Not Recovered/Not Resolved]
  - Endocrine ophthalmopathy [Unknown]
  - Graves^ disease [Unknown]
  - Iridocyclitis [Unknown]
  - Pain [Unknown]
  - Emotional distress [Unknown]
  - Anxiety [Unknown]
  - Discomfort [Unknown]
  - Product use complaint [Unknown]
  - Gastrooesophageal reflux disease [Unknown]
  - Blood thyroid stimulating hormone increased [Unknown]
  - Body fat disorder [Unknown]
  - Blood glucose increased [Unknown]
  - Muscle spasms [Unknown]
  - Tinnitus [Not Recovered/Not Resolved]
  - Hypotension [Unknown]
  - Joint swelling [Unknown]
  - Injury of conjunctiva [Unknown]
  - Corneal abrasion [Unknown]

NARRATIVE: CASE EVENT DATE: 20200825
